FAERS Safety Report 6773275-1 (Version None)
Quarter: 2010Q2

REPORT INFORMATION
  Report Type: 
  Country: None (occurrence: None)
  Receive Date: 20100616
  Receipt Date: 20100323
  Transmission Date: 20101027
  Serious: No
  Sender: FDA-Public Use
  Company Number: US-ABBOTT-10P-163-0635200-00

PATIENT
  Sex: Female
  Weight: 90.346 kg

DRUGS (4)
  1. TRILIPIX [Suspect]
     Indication: BLOOD CHOLESTEROL INCREASED
     Route: 048
     Dates: start: 20100201, end: 20100320
  2. SYNTHROID [Concomitant]
     Indication: HYPOTHYROIDISM
  3. DILTIAZEM [Concomitant]
     Indication: ARRHYTHMIA
  4. ASPIRIN [Concomitant]
     Indication: DRUG USE FOR UNKNOWN INDICATION
     Route: 048

REACTIONS (4)
  - FLANK PAIN [None]
  - POLLAKIURIA [None]
  - URINARY INCONTINENCE [None]
  - VULVOVAGINAL PAIN [None]
